FAERS Safety Report 5190020-4 (Version None)
Quarter: 2006Q4

REPORT INFORMATION
  Report Type: 
  Country: None (occurrence: None)
  Receive Date: 20061218
  Receipt Date: 20061206
  Transmission Date: 20070319
  Serious: Yes (Hospitalization, Other)
  Sender: FDA-Public Use
  Company Number: MIN-000094

PATIENT
  Age: 47 Year
  Sex: Male
  Weight: 72 kg

DRUGS (2)
  1. MINOCYCLINE HCL [Suspect]
     Indication: PUSTULAR PSORIASIS
     Dosage: 100 MG, DAILY, ORAL
     Route: 048
  2. MINOCYCLINE HCL [Suspect]
     Indication: PUSTULAR PSORIASIS
     Dosage: ORAL
     Route: 048
     Dates: start: 20040101, end: 20041101

REACTIONS (5)
  - PARAESTHESIA [None]
  - POLYARTERITIS NODOSA [None]
  - PYREXIA [None]
  - SPLENOMEGALY [None]
  - TESTICULAR PAIN [None]
